FAERS Safety Report 17518097 (Version 1)
Quarter: 2020Q1

REPORT INFORMATION
  Report Type: Spontaneous
  Country: JP (occurrence: JP)
  Receive Date: 20200309
  Receipt Date: 20200309
  Transmission Date: 20200409
  Serious: Yes (Hospitalization)
  Sender: FDA-Public Use
  Company Number: JP-JNJFOC-20191241604

PATIENT
  Age: 93 Year
  Sex: Male

DRUGS (1)
  1. ERLEADA [Suspect]
     Active Substance: APALUTAMIDE
     Indication: PRODUCT USED FOR UNKNOWN INDICATION
     Route: 048
     Dates: start: 20191016

REACTIONS (3)
  - Vasodilatation [Unknown]
  - Anaemia [Recovered/Resolved]
  - Small intestinal haemorrhage [Unknown]

NARRATIVE: CASE EVENT DATE: 2019
